FAERS Safety Report 5812500-8 (Version None)
Quarter: 2008Q3

REPORT INFORMATION
  Report Type: 
  Country: None (occurrence: None)
  Receive Date: 20080711
  Receipt Date: 20080707
  Transmission Date: 20090109
  Serious: Yes (Disabling)
  Sender: FDA-Public Use
  Company Number: OSCN-NO-0712L-0504

PATIENT
  Age: 65 Year
  Sex: Male

DRUGS (2)
  1. OMNISCAN [Suspect]
     Indication: RENAL TRANSPLANT
     Dosage: 0.1 MMOL/KG, SINGLE DOSE, I.V.
     Route: 042
     Dates: start: 20021021, end: 20021021
  2. GADODENATE DIMEGLUMINE (MULTIHANCE) [Concomitant]

REACTIONS (1)
  - NEPHROGENIC SYSTEMIC FIBROSIS [None]
